FAERS Safety Report 10996285 (Version 1)
Quarter: 2015Q2

REPORT INFORMATION
  Report Type: Spontaneous
  Country: GB (occurrence: GB)
  Receive Date: 20150408
  Receipt Date: 20150408
  Transmission Date: 20150821
  Serious: Yes (Other)
  Sender: FDA-Public Use
  Company Number: GB-AMGEN-GBRSP2015032663

PATIENT
  Age: 13 Year

DRUGS (1)
  1. ENBREL [Suspect]
     Active Substance: ETANERCEPT
     Indication: PRODUCT USED FOR UNKNOWN INDICATION
     Dosage: UNK  WEEKLY
     Route: 065

REACTIONS (6)
  - Brain mass [Unknown]
  - Headache [Unknown]
  - Cerebrovascular accident [Unknown]
  - Inflammation [Unknown]
  - Brain neoplasm [Unknown]
  - Demyelination [Unknown]
